FAERS Safety Report 20081931 (Version 1)
Quarter: 2021Q4

REPORT INFORMATION
  Report Type: Spontaneous
  Country: US (occurrence: None)
  Receive Date: 20211117
  Receipt Date: 20211117
  Transmission Date: 20220303
  Serious: No
  Sender: FDA-Public Use
  Company Number: None

PATIENT
  Age: 63 Year
  Sex: Female

DRUGS (1)
  1. REMICADE [Suspect]
     Active Substance: INFLIXIMAB
     Indication: Rheumatoid arthritis
     Dosage: OTHER QUANTITY : 100MG/VL;?OTHER FREQUENCY : EVERY 5 WEEKS;?
     Route: 042
     Dates: start: 20170316

REACTIONS (7)
  - Joint swelling [None]
  - Arthralgia [None]
  - Back pain [None]
  - Pain in extremity [None]
  - Musculoskeletal stiffness [None]
  - Therapeutic product effect decreased [None]
  - Haemarthrosis [None]

NARRATIVE: CASE EVENT DATE: 20211108
